FAERS Safety Report 8773076 (Version 3)
Quarter: 2012Q4

REPORT INFORMATION
  Report Type: 
  Country: JP (occurrence: JP)
  Receive Date: 20120907
  Receipt Date: 20121015
  Transmission Date: 20130627
  Serious: Yes (Hospitalization)
  Sender: FDA-Public Use
  Company Number: JP-SANOFI-AVENTIS-2012SA064497

PATIENT
  Age: 60 Year
  Sex: Female

DRUGS (7)
  1. MYSLEE [Suspect]
     Indication: INSOMNIA
     Dosage: route: via tube
     Dates: start: 2009, end: 20120705
  2. MYSLEE [Suspect]
     Indication: INSOMNIA
     Dosage: route: via tube
     Dates: start: 20120706, end: 20120907
  3. PHENOBAL [Concomitant]
  4. DIOVANE [Concomitant]
  5. DEPAS [Concomitant]
     Route: 048
  6. ATELEC [Concomitant]
  7. THYRADIN [Concomitant]

REACTIONS (3)
  - White blood cell count decreased [Not Recovered/Not Resolved]
  - Platelet count decreased [Not Recovered/Not Resolved]
  - Intentional drug misuse [Unknown]
